FAERS Safety Report 5603854-6 (Version None)
Quarter: 2008Q1

REPORT INFORMATION
  Report Type: 
  Country: None (occurrence: None)
  Receive Date: 20080124
  Receipt Date: 20080124
  Transmission Date: 20080703
  Serious: Yes (Hospitalization)
  Sender: FDA-Public Use
  Company Number: None

PATIENT
  Sex: Male
  Weight: 63.18 kg

DRUGS (1)
  1. TEMOZOLOMIDE [Suspect]
     Dosage: 2295 MG

REACTIONS (3)
  - ASTHENIA [None]
  - FALL [None]
  - HEADACHE [None]
